FAERS Safety Report 18794689 (Version 1)
Quarter: 2021Q1

REPORT INFORMATION
  Report Type: Spontaneous
  Country: CN (occurrence: CN)
  Receive Date: 20210127
  Receipt Date: 20210127
  Transmission Date: 20210419
  Serious: Yes (Hospitalization)
  Sender: FDA-Public Use
  Company Number: CN-GUERBET-CN-20210012

PATIENT
  Age: 39 Year
  Sex: Female

DRUGS (2)
  1. GELATIN SPONGE [Concomitant]
     Indication: THERAPEUTIC EMBOLISATION
     Route: 013
  2. LIPIODOL [Suspect]
     Active Substance: ETHIODIZED OIL
     Indication: THERAPEUTIC EMBOLISATION
     Route: 013

REACTIONS (5)
  - Necrosis [Recovering/Resolving]
  - Product use in unapproved indication [Recovering/Resolving]
  - Flank pain [Recovering/Resolving]
  - Maternal exposure during pregnancy [Recovering/Resolving]
  - Pyrexia [Recovering/Resolving]
